FAERS Safety Report 4725028-3 (Version None)
Quarter: 2005Q3

REPORT INFORMATION
  Report Type: 
  Country: None (occurrence: None)
  Receive Date: 20050722
  Receipt Date: 20050711
  Transmission Date: 20060218
  Serious: Yes (Hospitalization, Other)
  Sender: FDA-Public Use
  Company Number: 2005099407

PATIENT

DRUGS (2)
  1. ZITHROMAX [Suspect]
     Indication: ILL-DEFINED DISORDER
  2. ETHAMBUTOL (ETHAMBUTOL) [Suspect]
     Indication: ILL-DEFINED DISORDER

REACTIONS (2)
  - DEAFNESS [None]
  - DRUG INTERACTION [None]
